FAERS Safety Report 13646093 (Version 3)
Quarter: 2017Q3

REPORT INFORMATION
  Report Type: Report from Study
  Country: None (occurrence: US)
  Receive Date: 20170613
  Receipt Date: 20170907
  Transmission Date: 20171127
  Serious: Yes (Hospitalization, Other)
  Sender: FDA-Public Use
  Company Number: US-ABBVIE-17K-163-2005210-00

PATIENT
  Age: 44 Year
  Sex: Male

DRUGS (4)
  1. SULFASALAZINE. [Concomitant]
     Active Substance: SULFASALAZINE
     Indication: CROHN^S DISEASE
  2. LOVENOX [Concomitant]
     Active Substance: ENOXAPARIN SODIUM
     Indication: THROMBOSIS PROPHYLAXIS
  3. HUMIRA [Suspect]
     Active Substance: ADALIMUMAB
     Indication: CROHN^S DISEASE
     Route: 058
     Dates: start: 20160324, end: 201702
  4. HUMIRA [Suspect]
     Active Substance: ADALIMUMAB
     Route: 058
     Dates: start: 201707, end: 201707

REACTIONS (19)
  - Abdominal distension [Recovered/Resolved]
  - Post procedural infection [Recovered/Resolved]
  - Infection [Recovered/Resolved]
  - Pyoderma [Recovered/Resolved]
  - Constipation [Recovered/Resolved]
  - Abscess [Recovered/Resolved]
  - Vomiting [Recovered/Resolved]
  - Gastrointestinal inflammation [Recovered/Resolved]
  - Arthritis enteropathic [Recovering/Resolving]
  - Abdominal distension [Recovered/Resolved]
  - Small intestinal obstruction [Recovered/Resolved]
  - Intestinal fistula [Recovering/Resolving]
  - Nausea [Recovered/Resolved]
  - Abdominal adhesions [Recovering/Resolving]
  - Abdominal adhesions [Recovered/Resolved]
  - Post procedural fistula [Recovered/Resolved]
  - Pain [Recovering/Resolving]
  - Pyrexia [Recovered/Resolved]
  - Abscess [Recovered/Resolved]

NARRATIVE: CASE EVENT DATE: 201703
